FAERS Safety Report 9063064 (Version 3)
Quarter: 2013Q2

REPORT INFORMATION
  Report Type: Spontaneous
  Country: US (occurrence: US)
  Receive Date: 20130213
  Receipt Date: 20130517
  Transmission Date: 20140414
  Serious: Yes (Other)
  Sender: FDA-Public Use
  Company Number: US-SANOFI-AVENTIS-2013SA012203

PATIENT
  Age: 90 Year
  Sex: Female
  Weight: 75 kg

DRUGS (9)
  1. LANTUS SOLOSTAR [Suspect]
     Indication: TYPE 2 DIABETES MELLITUS
     Dosage: DOSE:18 UNIT(S)
     Route: 058
     Dates: start: 2004
  2. LANTUS SOLOSTAR [Suspect]
     Indication: TYPE 2 DIABETES MELLITUS
     Dosage: DOSE:18 UNIT(S)
     Route: 058
     Dates: start: 2004
  3. SOLOSTAR [Suspect]
     Indication: TYPE 2 DIABETES MELLITUS
     Dates: start: 2006
  4. SOLOSTAR [Suspect]
     Indication: TYPE 2 DIABETES MELLITUS
     Dates: start: 2006
  5. CRESTOR [Concomitant]
     Indication: BLOOD PRESSURE
     Dosage: DOSE:40 UNIT(S)
  6. CRESTOR [Concomitant]
     Indication: BLOOD CHOLESTEROL
     Dosage: DOSE:40 UNIT(S)
  7. ZETIA [Concomitant]
     Indication: BLOOD PRESSURE
  8. ZETIA [Concomitant]
     Indication: BLOOD CHOLESTEROL
  9. ACETYLSALICYLIC ACID [Concomitant]

REACTIONS (6)
  - Cataract operation [Unknown]
  - Carpal tunnel decompression [Unknown]
  - Rotator cuff syndrome [Unknown]
  - Hearing impaired [Unknown]
  - Glycosylated haemoglobin increased [Unknown]
  - Drug dose omission [Unknown]
